FAERS Safety Report 4748563-0 (Version None)
Quarter: 2005Q3

REPORT INFORMATION
  Report Type: 
  Country: None (occurrence: None)
  Receive Date: 20050818
  Receipt Date: 20050818
  Transmission Date: 20060218
  Serious: No
  Sender: FDA-Public Use
  Company Number: None

PATIENT
  Age: 40 Year
  Sex: Female
  Weight: 93.3 kg

DRUGS (1)
  1. BACLOFEN [Suspect]
     Indication: MUSCLE SPASTICITY
     Dosage: 20 MG   EVERY 8 HOURS   ORAL
     Route: 048
     Dates: start: 20050715, end: 20050719

REACTIONS (1)
  - HYPERHIDROSIS [None]
